FAERS Safety Report 9976036 (Version 1)
Quarter: 2014Q1

REPORT INFORMATION
  Report Type: Report from Study
  Country: CA (occurrence: CA)
  Receive Date: 20140306
  Receipt Date: 20140306
  Transmission Date: 20141002
  Serious: Yes (Other)
  Sender: FDA-Public Use
  Company Number: CA-JNJFOC-20140216378

PATIENT
  Age: 37 Year
  Sex: Female

DRUGS (4)
  1. REMICADE [Suspect]
     Indication: CROHN^S DISEASE
     Dosage: EVERY 6-8 WEEKS
     Route: 042
     Dates: start: 20110627
  2. TYLENOL [Concomitant]
     Indication: PREMEDICATION
     Route: 048
  3. BENADRYL [Concomitant]
     Indication: PREMEDICATION
     Route: 042
  4. SOLU MEDROL [Concomitant]
     Indication: PREMEDICATION
     Route: 042

REACTIONS (8)
  - Hypokinesia [Unknown]
  - VIth nerve paralysis [Recovering/Resolving]
  - Pulmonary embolism [Recovering/Resolving]
  - Postural orthostatic tachycardia syndrome [Unknown]
  - Meningitis leptospiral [Recovering/Resolving]
  - Hypotension [Unknown]
  - Cerebrospinal fluid leakage [Recovering/Resolving]
  - Migraine [Recovering/Resolving]
